FAERS Safety Report 18418487 (Version 3)
Quarter: 2023Q1

REPORT INFORMATION
  Report Type: Spontaneous
  Country: PT (occurrence: PT)
  Receive Date: 20201023
  Receipt Date: 20230127
  Transmission Date: 20230418
  Serious: Yes (Death, Other)
  Sender: FDA-Public Use
  Company Number: PT-SA-2020SA296159

PATIENT
  Age: 43 Year
  Sex: Male

DRUGS (1)
  1. ENOXAPARIN SODIUM [Suspect]
     Active Substance: ENOXAPARIN SODIUM
     Indication: Pulmonary embolism
     Dosage: 120 MG 2 DAILY DOSES
     Route: 065

REACTIONS (6)
  - Hyperlactacidaemia [Fatal]
  - Haemorrhage [Fatal]
  - Haemoglobin decreased [Fatal]
  - Haemoperitoneum [Fatal]
  - Tachycardia [Fatal]
  - Hypotension [Fatal]
